FAERS Safety Report 18231982 (Version 1)
Quarter: 2020Q3

REPORT INFORMATION
  Report Type: Spontaneous
  Country: CA (occurrence: CA)
  Receive Date: 20200904
  Receipt Date: 20200904
  Transmission Date: 20201103
  Serious: Yes (Hospitalization, Other)
  Sender: FDA-Public Use
  Company Number: CA-PFIZER INC-2020340873

PATIENT
  Age: 32 Year
  Sex: Female

DRUGS (7)
  1. FLAGYL [Concomitant]
     Active Substance: METRONIDAZOLE\METRONIDAZOLE HYDROCHLORIDE
     Dosage: UNK 3?WEEK COURSE
     Route: 065
  2. TRAMACET [Concomitant]
     Active Substance: ACETAMINOPHEN\TRAMADOL
     Dosage: 1?2 TAB Q 4?6H AS NEEDED
     Route: 048
  3. MAGNESIUM [Concomitant]
     Active Substance: MAGNESIUM
     Dosage: 1 TSP
     Route: 048
  4. METRONIDAZOLE. [Concomitant]
     Active Substance: METRONIDAZOLE
     Dosage: 500 MG, 2X/DAY
     Route: 048
  5. CIPROFLOXACIN. [Suspect]
     Active Substance: CIPROFLOXACIN
     Dosage: UNK
     Route: 042
     Dates: end: 20200610
  6. CIPROFLOXACIN. [Suspect]
     Active Substance: CIPROFLOXACIN
     Dosage: 500 MG, 2X/DAY
     Route: 048
  7. HYDROMORPHONE [Concomitant]
     Active Substance: HYDROMORPHONE
     Dosage: 1 MG Q 6?8H AS NEEDED
     Route: 048

REACTIONS (4)
  - Anal abscess [Unknown]
  - Fistula discharge [Unknown]
  - Anal fistula [Unknown]
  - Emotional disorder [Unknown]

NARRATIVE: CASE EVENT DATE: 2020
